FAERS Safety Report 6164369-2 (Version None)
Quarter: 2009Q2

REPORT INFORMATION
  Report Type: 
  Country: None (occurrence: None)
  Receive Date: 20090422
  Receipt Date: 20090414
  Transmission Date: 20091009
  Serious: Yes (Hospitalization)
  Sender: FDA-Public Use
  Company Number: DE-AMGEN-UK336612

PATIENT
  Sex: Male
  Weight: 83 kg

DRUGS (5)
  1. NPLATE [Suspect]
     Indication: IDIOPATHIC THROMBOCYTOPENIC PURPURA
     Route: 058
     Dates: start: 20090122, end: 20090212
  2. ARIXTRA [Concomitant]
     Route: 058
     Dates: end: 20090303
  3. PREDNISONE [Concomitant]
     Route: 048
  4. IMMUNOGLOBULINS [Concomitant]
     Route: 065
  5. ENALAPRIL [Concomitant]
     Route: 065

REACTIONS (2)
  - HYPERCOAGULATION [None]
  - THROMBOSIS [None]
